FAERS Safety Report 19989123 (Version 2)
Quarter: 2022Q1

REPORT INFORMATION
  Report Type: Report from Study
  Country: CN (occurrence: CN)
  Receive Date: 20211025
  Receipt Date: 20220329
  Transmission Date: 20220423
  Serious: Yes (Hospitalization, Other)
  Sender: FDA-Public Use
  Company Number: CN-BRISTOL-MYERS SQUIBB COMPANY-BMS-2021-107944

PATIENT
  Age: 38 Year
  Sex: Male

DRUGS (4)
  1. NIVOLUMAB [Suspect]
     Active Substance: NIVOLUMAB
     Indication: Gastric cancer
     Dosage: 246 MILLIGRAM, Q2WK
     Route: 041
     Dates: start: 20210511
  2. NIVOLUMAB [Suspect]
     Active Substance: NIVOLUMAB
     Dosage: 193 MILLIGRAM, Q2WK
     Route: 041
  3. NIVOLUMAB [Suspect]
     Active Substance: NIVOLUMAB
     Indication: Gastric cancer
     Dosage: 193 MILLIGRAM, Q2WK
     Route: 041
  4. NIVOLUMAB [Suspect]
     Active Substance: NIVOLUMAB
     Dosage: 246 MILLIGRAM, Q2WK
     Route: 041
     Dates: start: 20210511

REACTIONS (4)
  - Cachexia [Not Recovered/Not Resolved]
  - Biliary tract disorder [Unknown]
  - Weight decreased [Unknown]
  - Pain [Unknown]

NARRATIVE: CASE EVENT DATE: 20220207
